FAERS Safety Report 9786505 (Version 3)
Quarter: 2014Q1

REPORT INFORMATION
  Report Type: Report from Study
  Country: US (occurrence: US)
  Receive Date: 20131227
  Receipt Date: 20140124
  Transmission Date: 20141002
  Serious: Yes (Hospitalization, Other)
  Sender: FDA-Public Use
  Company Number: US-US-EMD SERONO, INC.-7247881

PATIENT
  Age: 23 Year
  Sex: Female

DRUGS (1)
  1. REBIF [Suspect]
     Indication: MULTIPLE SCLEROSIS
     Route: 058
     Dates: start: 20121017, end: 201309

REACTIONS (4)
  - Unresponsive to stimuli [Recovered/Resolved]
  - Multiple sclerosis relapse [Recovering/Resolving]
  - Convulsion [Recovering/Resolving]
  - Anxiety [Unknown]
